FAERS Safety Report 6985442 (Version 2)
Quarter: 2013Q1

REPORT INFORMATION
  Report Type: Spontaneous
  Country: US (occurrence: US)
  Receive Date: 20090504
  Receipt Date: 20130214
  Transmission Date: 20140127
  Serious: Yes (Other)
  Sender: FDA-Public Use
  Company Number: US-ALEXION-A200800427

PATIENT
  Age: 21 None
  Sex: Female

DRUGS (4)
  1. SOLIRIS [Suspect]
     Indication: PAROXYSMAL NOCTURNAL HAEMOGLOBINURIA
     Dosage: 600 MG, QW +/- 2 DAYS X 4 DOSES
     Route: 042
  2. SOLIRIS [Suspect]
     Dosage: 900 MG, SINGLE Q7 +/- 2 DAYS LATER
     Route: 042
  3. SOLIRIS [Suspect]
     Dosage: 900 MG, Q2W +/- 2 DAYS
     Route: 042
  4. ADDERALL [Concomitant]

REACTIONS (4)
  - Intravascular haemolysis [Recovered/Resolved]
  - Respiratory tract infection viral [Recovering/Resolving]
  - Blood lactate dehydrogenase increased [Recovered/Resolved]
  - Haemoglobin decreased [Recovering/Resolving]
